FAERS Safety Report 5834092-X (Version None)
Quarter: 2008Q3

REPORT INFORMATION
  Report Type: 
  Country: None (occurrence: None)
  Receive Date: 20080805
  Receipt Date: 20080730
  Transmission Date: 20090109
  Serious: Yes (Other)
  Sender: FDA-Public Use
  Company Number: US-BRISTOL-MYERS SQUIBB COMPANY-14285647

PATIENT
  Age: 42 Year
  Sex: Male

DRUGS (7)
  1. CYCLOPHOSPHAMIDE [Suspect]
     Indication: CHEMOTHERAPY
  2. CARMUSTINE [Suspect]
     Indication: CHEMOTHERAPY
  3. ETOPOSIDE [Suspect]
     Indication: CHEMOTHERAPY
  4. VINCRISTINE SULFATE [Suspect]
     Indication: CHEMOTHERAPY
  5. CYTARABINE [Suspect]
     Indication: CHEMOTHERAPY
  6. MITOXANTRONE [Suspect]
     Indication: CHEMOTHERAPY
  7. PREDNISONE TAB [Suspect]
     Indication: CHEMOTHERAPY

REACTIONS (1)
  - GUILLAIN-BARRE SYNDROME [None]
